FAERS Safety Report 5044759-1 (Version None)
Quarter: 2006Q2

REPORT INFORMATION
  Report Type: 
  Country: None (occurrence: None)
  Receive Date: 20060601
  Receipt Date: 20060310
  Transmission Date: 20061013
  Serious: No
  Sender: FDA-Public Use
  Company Number: 2006-BP-02318BP

PATIENT
  Age: 78 Year
  Sex: Female

DRUGS (5)
  1. SPIRIVA [Suspect]
     Indication: ASTHMA
     Dosage: 18 MCG (18 MCG 1 PUFF DAILY) IH
     Route: 055
     Dates: start: 20060209, end: 20060210
  2. SPIRIVA [Suspect]
     Indication: CHRONIC OBSTRUCTIVE PULMONARY DISEASE
     Dosage: 18 MCG (18 MCG 1 PUFF DAILY) IH
     Route: 055
     Dates: start: 20060209, end: 20060210
  3. ADVAIR (SERETIDE /01420901 /) [Concomitant]
  4. CARTIA XT [Concomitant]
  5. LISINOPRIL [Concomitant]

REACTIONS (3)
  - CONSTIPATION [None]
  - DRUG HYPERSENSITIVITY [None]
  - RASH GENERALISED [None]
